FAERS Safety Report 9957691 (Version 1)
Quarter: 2014Q1

REPORT INFORMATION
  Report Type: Report from Study
  Country: US (occurrence: US)
  Receive Date: 20140304
  Receipt Date: 20140304
  Transmission Date: 20141002
  Serious: No
  Sender: FDA-Public Use
  Company Number: US-ABBVIE-13P-163-1096051-00

PATIENT
  Age: 42 Year
  Sex: Female

DRUGS (7)
  1. HUMIRA [Suspect]
     Indication: PSORIATIC ARTHROPATHY
     Route: 058
     Dates: start: 20121016
  2. AMBIEN [Concomitant]
     Indication: INSOMNIA
     Dosage: AT BEDTIME
  3. LISINOPRIL [Concomitant]
     Indication: HYPERTENSION
  4. WELLBUTRIN [Concomitant]
     Indication: DEPRESSION
     Dates: end: 201303
  5. ESTRADIOL [Concomitant]
     Indication: HORMONE REPLACEMENT THERAPY
     Dates: end: 201303
  6. TOPAMAX [Concomitant]
     Indication: BIPOLAR DISORDER
     Dates: end: 201303
  7. SULFASALAZINE [Concomitant]
     Indication: ANTIINFLAMMATORY THERAPY
     Dosage: UP TO 6 DOSAGES PER DAY
     Dates: end: 201303

REACTIONS (6)
  - Endodontic procedure [Not Recovered/Not Resolved]
  - Drug dose omission [Not Recovered/Not Resolved]
  - Arthritis [Not Recovered/Not Resolved]
  - Arthritis [Not Recovered/Not Resolved]
  - Joint swelling [Not Recovered/Not Resolved]
  - Arthralgia [Not Recovered/Not Resolved]
